FAERS Safety Report 7415106-2 (Version None)
Quarter: 2011Q2

REPORT INFORMATION
  Report Type: 
  Country: None (occurrence: None)
  Receive Date: 20110414
  Receipt Date: 20110401
  Transmission Date: 20111010
  Serious: Yes (Hospitalization)
  Sender: FDA-Public Use
  Company Number: PHHY2011NL18083

PATIENT
  Sex: Male

DRUGS (4)
  1. ZOMETA [Suspect]
     Indication: PROSTATE CANCER METASTATIC
     Dosage: 4 MG/ 5 ML 1X PER 28 DAYS
     Route: 042
     Dates: start: 20091117
  2. ZOMETA [Suspect]
     Dosage: UNK
     Route: 042
     Dates: start: 20110301
  3. ZOMETA [Suspect]
     Dosage: UNK
     Route: 042
     Dates: start: 20110203
  4. ZOMETA [Suspect]
     Dosage: UNK
     Route: 042
     Dates: start: 20110106

REACTIONS (5)
  - HAEMOGLOBIN DECREASED [None]
  - TRANSFUSION REACTION [None]
  - MALAISE [None]
  - BACTERIAL INFECTION [None]
  - NOSOCOMIAL INFECTION [None]
